FAERS Safety Report 23551846 (Version 2)
Quarter: 2024Q1

REPORT INFORMATION
  Report Type: Spontaneous
  Country: JP (occurrence: JP)
  Receive Date: 20240222
  Receipt Date: 20240306
  Transmission Date: 20240410
  Serious: Yes (Death, Other)
  Sender: FDA-Public Use
  Company Number: JP-VIIV HEALTHCARE LIMITED-JP2024JPN023134

PATIENT

DRUGS (10)
  1. VOCABRIA [Suspect]
     Active Substance: CABOTEGRAVIR SODIUM
     Indication: HIV infection
     Dosage: 600 MG, QD
     Route: 030
     Dates: start: 20231113, end: 20240102
  2. RILPIVIRINE [Suspect]
     Active Substance: RILPIVIRINE
     Indication: HIV infection
     Dosage: 900 MG, QD
     Route: 030
     Dates: start: 20231113, end: 20240102
  3. TALTIRELIN [Concomitant]
     Active Substance: TALTIRELIN
     Dosage: UNK
  4. IMIDAPRIL [Concomitant]
     Active Substance: IMIDAPRIL
     Dosage: UNK
  5. BROTIZOLAM [Concomitant]
     Active Substance: BROTIZOLAM
     Dosage: UNK
  6. DIMETHICONE [Concomitant]
     Active Substance: DIMETHICONE
     Dosage: UNK
  7. ETIZOLAM [Concomitant]
     Active Substance: ETIZOLAM
     Dosage: UNK
  8. ESZOPICLONE [Concomitant]
     Active Substance: ESZOPICLONE
     Dosage: UNK
  9. PREGABALIN [Concomitant]
     Active Substance: PREGABALIN
     Dosage: UNK
  10. MAGNESIUM OXIDE [Concomitant]
     Active Substance: MAGNESIUM OXIDE
     Dosage: UNK

REACTIONS (2)
  - Asphyxia [Fatal]
  - Cardio-respiratory arrest [Fatal]

NARRATIVE: CASE EVENT DATE: 20231228
